FAERS Safety Report 4560941-1 (Version None)
Quarter: 2005Q1

REPORT INFORMATION
  Report Type: 
  Country: None (occurrence: None)
  Receive Date: 20050126
  Receipt Date: 20040217
  Transmission Date: 20050727
  Serious: No
  Sender: FDA-Public Use
  Company Number: US-BRISTOL-MYERS SQUIBB COMPANY-12509840

PATIENT
  Age: 64 Year
  Sex: Female
  Weight: 72 kg

DRUGS (15)
  1. GLUCOPHAGE [Suspect]
     Indication: DIABETES MELLITUS
     Dosage: DURATION OF THERAPY: ^YEARS^
     Route: 048
  2. LOTREL [Concomitant]
  3. LANOXIN [Concomitant]
  4. ECOTRIN [Concomitant]
  5. BEXTRA [Concomitant]
  6. NEURONTIN [Concomitant]
  7. FESO4 [Concomitant]
  8. DOXYCYCLINE [Concomitant]
  9. ALLEGRA [Concomitant]
  10. LIPITOR [Concomitant]
  11. COSOPT [Concomitant]
  12. FOLIC ACID [Concomitant]
  13. ESTRACE [Concomitant]
  14. VIVELLE [Concomitant]
  15. DARVOCET [Concomitant]

REACTIONS (1)
  - CONSTIPATION [None]
